FAERS Safety Report 26091696 (Version 3)
Quarter: 2025Q4

REPORT INFORMATION
  Report Type: Spontaneous
  Country: JP (occurrence: JP)
  Receive Date: 20251126
  Receipt Date: 20251230
  Transmission Date: 20260117
  Serious: Yes (Hospitalization, Other)
  Sender: ALEXION PHARMACEUTICALS
  Company Number: JP-AstraZeneca-CH-00996788A

PATIENT
  Age: 57 Year
  Sex: Female

DRUGS (4)
  1. IMFINZI [Suspect]
     Active Substance: DURVALUMAB
     Indication: Endometrial cancer recurrent
     Dosage: 1120 MILLIGRAM, Q3W
  2. LYNPARZA [Suspect]
     Active Substance: OLAPARIB
     Indication: Endometrial cancer recurrent
     Dosage: 300 MILLIGRAM, BID
     Route: 061
  3. CARBOPLATIN [Suspect]
     Active Substance: CARBOPLATIN
     Indication: Endometrial cancer recurrent
     Dosage: UNK
     Route: 065
  4. PACLITAXEL [Suspect]
     Active Substance: PACLITAXEL
     Indication: Endometrial cancer recurrent
     Dosage: UNK
     Route: 065

REACTIONS (4)
  - Anaemia [Not Recovered/Not Resolved]
  - Peripheral sensory neuropathy [Unknown]
  - Neutrophil count decreased [Unknown]
  - Platelet count decreased [Unknown]

NARRATIVE: CASE EVENT DATE: 20250101
